FAERS Safety Report 13038701 (Version 1)
Quarter: 2016Q4

REPORT INFORMATION
  Report Type: Spontaneous
  Country: US (occurrence: US)
  Receive Date: 20161219
  Receipt Date: 20161219
  Transmission Date: 20170207
  Serious: No
  Sender: FDA-Public Use
  Company Number: US-DRREDDYS-USA/USA/16/0080253

PATIENT
  Age: 42 Year
  Sex: Male

DRUGS (2)
  1. OMEPRAZOLE DELAYED RELEASE CAPSULES 20 MG [Suspect]
     Active Substance: OMEPRAZOLE
     Indication: GASTROOESOPHAGEAL REFLUX DISEASE
     Dosage: FROM PAST 12 YEARS
  2. RANITIDINE. [Suspect]
     Active Substance: RANITIDINE
     Indication: GASTROOESOPHAGEAL REFLUX DISEASE

REACTIONS (6)
  - Gastric polyps [Recovering/Resolving]
  - Gastrooesophageal reflux disease [Unknown]
  - Flatulence [Unknown]
  - Abdominal pain [Unknown]
  - Condition aggravated [Unknown]
  - Diarrhoea [Unknown]
